FAERS Safety Report 26159529 (Version 1)
Quarter: 2025Q4

REPORT INFORMATION
  Report Type: Spontaneous
  Country: EU (occurrence: EU)
  Receive Date: 20251216
  Receipt Date: 20251216
  Transmission Date: 20260118
  Serious: Yes (Other)
  Sender: CELLTRION
  Company Number: EU-TEVA-VS-3398316

PATIENT

DRUGS (4)
  1. RITUXIMAB [Suspect]
     Active Substance: RITUXIMAB
     Indication: Diffuse large B-cell lymphoma
     Dosage: MATRIX PROTOCOL, RECEIVED TWO CYCLES
  2. CYTARABINE [Suspect]
     Active Substance: CYTARABINE
     Indication: Diffuse large B-cell lymphoma
     Dosage: MATRIX PROTOCOL, RECEIVED TWO CYCLES
  3. METHOTREXATE [Suspect]
     Active Substance: METHOTREXATE
     Indication: Diffuse large B-cell lymphoma
     Dosage: MATRIX PROTOCOL, RECEIVED TWO CYCLES
  4. THIOTEPA [Suspect]
     Active Substance: THIOTEPA
     Indication: Diffuse large B-cell lymphoma
     Dosage: MATRIX PROTOCOL, RECEIVED TWO CYCLES

REACTIONS (4)
  - Cerebellar syndrome [Unknown]
  - Acute kidney injury [Unknown]
  - Haematotoxicity [Unknown]
  - Infection [Unknown]
